FAERS Safety Report 14853556 (Version 7)
Quarter: 2018Q2

REPORT INFORMATION
  Report Type: Report from Study
  Country: DE (occurrence: DE)
  Receive Date: 20180507
  Receipt Date: 20180629
  Transmission Date: 20180711
  Serious: Yes (Hospitalization)
  Sender: FDA-Public Use
  Company Number: PHHO2018DE005782

PATIENT
  Age: 74 Year
  Sex: Male
  Weight: 82 kg

DRUGS (8)
  1. BORTEZOMIB [Suspect]
     Active Substance: BORTEZOMIB
     Dosage: 1 MG/M2, QW
     Route: 058
     Dates: start: 20180514
  2. PANTOPRAZOLE [Concomitant]
     Active Substance: PANTOPRAZOLE
     Indication: PROPHYLAXIS
     Dosage: 20 MG
     Route: 065
     Dates: start: 20180413
  3. MCP [Concomitant]
     Active Substance: METOCLOPRAMIDE HYDROCHLORIDE
     Indication: NAUSEA
     Dosage: 20 TO 60 DROPS
     Route: 065
     Dates: start: 20180426
  4. DEXAMETHASONE. [Suspect]
     Active Substance: DEXAMETHASONE
     Indication: PLASMA CELL MYELOMA
     Dosage: 20 MG, QW
     Route: 048
     Dates: start: 20180416, end: 20180427
  5. BORTEZOMIB [Suspect]
     Active Substance: BORTEZOMIB
     Indication: PLASMA CELL MYELOMA
     Dosage: 1 MG/M2, QW
     Route: 058
     Dates: start: 20180416, end: 20180423
  6. HALOPERIDOL. [Concomitant]
     Active Substance: HALOPERIDOL
     Indication: DYSPHAGIA
     Dosage: 5 DROPS
     Route: 065
  7. LBH589 [Suspect]
     Active Substance: PANOBINOSTAT
     Indication: PLASMA CELL MYELOMA
     Dosage: 20 MG, BIW
     Route: 048
     Dates: start: 20180416, end: 20180426
  8. LBH589 [Suspect]
     Active Substance: PANOBINOSTAT
     Dosage: 20 MG, BIW
     Route: 048
     Dates: start: 20180514

REACTIONS (1)
  - Pancreatitis [Recovered/Resolved]

NARRATIVE: CASE EVENT DATE: 20180429
